FAERS Safety Report 9321053 (Version 1)
Quarter: 2013Q2

REPORT INFORMATION
  Report Type: Spontaneous
  Country: US (occurrence: None)
  Receive Date: 20130530
  Receipt Date: 20130530
  Transmission Date: 20140414
  Serious: Yes (Death, Other)
  Sender: FDA-Public Use
  Company Number: None

PATIENT
  Age: 56 Year
  Sex: Female
  Weight: 54.79 kg

DRUGS (1)
  1. ZOMETA [Suspect]
     Indication: BONE DISORDER
     Route: 041
     Dates: start: 20130115, end: 20130315

REACTIONS (2)
  - Oesophageal carcinoma [None]
  - Oesophagitis [None]
